FAERS Safety Report 8068855-X (Version None)
Quarter: 2012Q1

REPORT INFORMATION
  Report Type: 
  Country: None (occurrence: None)
  Receive Date: 20120125
  Receipt Date: 20120120
  Transmission Date: 20120608
  Serious: Yes (Hospitalization)
  Sender: FDA-Public Use
  Company Number: US-BIOGENIDEC-2012BI000740

PATIENT
  Age: 30 Year
  Sex: Female

DRUGS (3)
  1. TYSABRI [Suspect]
     Indication: MULTIPLE SCLEROSIS
     Route: 042
     Dates: start: 20080609, end: 20090303
  2. TYSABRI [Suspect]
     Route: 042
     Dates: start: 20100413, end: 20110816
  3. TYSABRI [Suspect]
     Route: 042
     Dates: start: 20120103

REACTIONS (1)
  - NO ADVERSE EVENT [None]
